FAERS Safety Report 7986782-0 (Version None)
Quarter: 2011Q4

REPORT INFORMATION
  Report Type: 
  Country: None (occurrence: None)
  Receive Date: 20111216
  Receipt Date: 20110223
  Transmission Date: 20120403
  Serious: No
  Sender: FDA-Public Use
  Company Number: US-BRISTOL-MYERS SQUIBB COMPANY-15570336

PATIENT
  Sex: Female

DRUGS (3)
  1. WELLBUTRIN [Suspect]
  2. ABILIFY [Suspect]
     Indication: DEPRESSION
     Route: 048
  3. ABILIFY [Suspect]
     Indication: ANXIETY DISORDER
     Route: 048

REACTIONS (2)
  - DYSTONIA [None]
  - TARDIVE DYSKINESIA [None]
